FAERS Safety Report 8525896 (Version 2)
Quarter: 2013Q3

REPORT INFORMATION
  Report Type: Spontaneous
  Country: GB (occurrence: GB)
  Receive Date: 20120423
  Receipt Date: 20130925
  Transmission Date: 20140515
  Serious: Yes (Hospitalization)
  Sender: FDA-Public Use
  Company Number: GB-ROCHE-1058955

PATIENT
  Age: 67 Year
  Sex: Male

DRUGS (12)
  1. CAPECITABINE [Suspect]
     Indication: COLON CANCER
     Dosage: 2150 MG
     Route: 048
     Dates: start: 20120316
  2. ASPIRIN [Concomitant]
     Route: 048
  3. ATENOLOL [Concomitant]
     Route: 048
  4. ATORVASTATIN [Concomitant]
     Route: 048
  5. FOLIC ACID [Concomitant]
     Route: 048
     Dates: start: 201111
  6. FUROSEMIDE [Concomitant]
     Route: 048
  7. GALFER [Concomitant]
     Route: 048
     Dates: start: 201111
  8. LOPERAMIDE [Concomitant]
     Route: 048
     Dates: start: 201112
  9. OMEPRAZOLE [Concomitant]
     Route: 048
  10. PARACETAMOL [Concomitant]
     Route: 048
     Dates: start: 201111
  11. RAMIPRIL [Concomitant]
     Route: 048
  12. ZOPICLONE [Concomitant]
     Route: 048
     Dates: start: 201111

REACTIONS (6)
  - Acute coronary syndrome [Not Recovered/Not Resolved]
  - Atrial fibrillation [Not Recovered/Not Resolved]
  - Chest pain [Not Recovered/Not Resolved]
  - Hypotension [Not Recovered/Not Resolved]
  - Palpitations [Not Recovered/Not Resolved]
  - Troponin I increased [Not Recovered/Not Resolved]
